FAERS Safety Report 12423164 (Version 1)
Quarter: 2016Q2

REPORT INFORMATION
  Report Type: Spontaneous
  Country: FR (occurrence: FR)
  Receive Date: 20160601
  Receipt Date: 20160601
  Transmission Date: 20160815
  Serious: Yes (Other)
  Sender: FDA-Public Use
  Company Number: FR-009507513-1605FRA014350

PATIENT
  Age: 68 Year
  Sex: Male

DRUGS (3)
  1. DEXAFREE [Suspect]
     Active Substance: DEXAMETHASONE SODIUM PHOSPHATE
     Dosage: UNK
     Route: 047
     Dates: start: 201601, end: 201601
  2. SYMBICORT [Suspect]
     Active Substance: BUDESONIDE\FORMOTEROL FUMARATE DIHYDRATE
     Indication: ASTHMA
     Dosage: UNK
     Route: 055
  3. NASONEX [Suspect]
     Active Substance: MOMETASONE FUROATE
     Indication: CHRONIC SINUSITIS
     Dosage: UNK
     Route: 045

REACTIONS (2)
  - Asthenia [Recovering/Resolving]
  - Blood cortisol decreased [Recovering/Resolving]

NARRATIVE: CASE EVENT DATE: 201601
